FAERS Safety Report 7796024-7 (Version None)
Quarter: 2011Q4

REPORT INFORMATION
  Report Type: 
  Country: None (occurrence: None)
  Receive Date: 20111004
  Receipt Date: 20110928
  Transmission Date: 20120403
  Serious: Yes (Other)
  Sender: FDA-Public Use
  Company Number: CHPA2011US13408

PATIENT
  Age: 72 Year
  Sex: Male

DRUGS (1)
  1. PERDIEM OVERNIGHT RELIEF PILLS [Suspect]
     Indication: CONSTIPATION
     Dosage: 3 DF, EVERY OTHER DAY
     Route: 048

REACTIONS (3)
  - INCORRECT DOSE ADMINISTERED [None]
  - INCORRECT DRUG ADMINISTRATION DURATION [None]
  - DRUG DEPENDENCE [None]
